APPROVED DRUG PRODUCT: MIDAZOLAM IN 0.9% SODIUM CHLORIDE
Active Ingredient: MIDAZOLAM
Strength: 100MG/100ML (1MG/ML)
Dosage Form/Route: SOLUTION;INTRAVENOUS
Application: A216159 | Product #002 | TE Code: AP
Applicant: HIKMA PHARMACEUTICALS USA INC
Approved: Apr 17, 2023 | RLD: No | RS: No | Type: RX